FAERS Safety Report 11178819 (Version 6)
Quarter: 2016Q1

REPORT INFORMATION
  Report Type: Report from Study
  Country: CA (occurrence: CA)
  Receive Date: 20150610
  Receipt Date: 20160310
  Transmission Date: 20160525
  Serious: Yes (Hospitalization, Other)
  Sender: FDA-Public Use
  Company Number: PHHY2013CA056652

PATIENT
  Age: 58 Year
  Sex: Male

DRUGS (3)
  1. SANDOSTATIN LAR DEPOT [Suspect]
     Active Substance: OCTREOTIDE ACETATE
     Indication: NEUROENDOCRINE TUMOUR
     Dosage: 20 MG, QMO
     Route: 030
     Dates: start: 20130426
  2. VENTOLIN [Concomitant]
     Active Substance: ALBUTEROL SULFATE
     Indication: RESPIRATORY DISORDER
     Route: 065
  3. SANDOSTATIN LAR DEPOT [Suspect]
     Active Substance: OCTREOTIDE ACETATE
     Dosage: 30 MG, QMO (EVERY FOUR WEEKS)
     Route: 030

REACTIONS (10)
  - Blood pressure increased [Unknown]
  - Urinary tract infection [Unknown]
  - Prostate cancer [Unknown]
  - Pain [Unknown]
  - Second primary malignancy [Unknown]
  - Pollakiuria [Unknown]
  - Heart rate decreased [Unknown]
  - Abdominal pain [Recovering/Resolving]
  - Body temperature decreased [Unknown]
  - Back injury [Unknown]

NARRATIVE: CASE EVENT DATE: 20130806
